FAERS Safety Report 6951183-0 (Version None)
Quarter: 2010Q3

REPORT INFORMATION
  Report Type: 
  Country: None (occurrence: None)
  Receive Date: 20100828
  Receipt Date: 20100317
  Transmission Date: 20110219
  Serious: No
  Sender: FDA-Public Use
  Company Number: US-ABBOTT-10P-163-0632782-00

PATIENT
  Sex: Female

DRUGS (1)
  1. NIASPAN [Suspect]
     Indication: BLOOD CHOLESTEROL INCREASED
     Dates: start: 20100315

REACTIONS (8)
  - DIARRHOEA [None]
  - ERYTHEMA [None]
  - EXOPHTHALMOS [None]
  - FLUSHING [None]
  - NAUSEA [None]
  - PAIN OF SKIN [None]
  - PALPITATIONS [None]
  - SKIN DISCOMFORT [None]
